FAERS Safety Report 21502281 (Version 2)
Quarter: 2022Q4

REPORT INFORMATION
  Report Type: Spontaneous
  Country: EG (occurrence: None)
  Receive Date: 20221025
  Receipt Date: 20221031
  Transmission Date: 20230113
  Serious: Yes (Death, Life-Threatening, Hospitalization, Disabling, Other)
  Sender: FDA-Public Use
  Company Number: EG-Hikma Pharmaceuticals-EG-H14001-22-02711

PATIENT
  Age: 64 Year
  Sex: Female
  Weight: 80 kg

DRUGS (2)
  1. PACLITAXEL [Suspect]
     Active Substance: PACLITAXEL
     Indication: Cervix carcinoma
     Route: 041
     Dates: start: 20210406
  2. CARBOPLATIN [Concomitant]
     Active Substance: CARBOPLATIN
     Indication: Cervix carcinoma
     Route: 065

REACTIONS (12)
  - Febrile neutropenia [Fatal]
  - Oliguria [Unknown]
  - International normalised ratio increased [Unknown]
  - Hypoglycaemia [Recovering/Resolving]
  - Disorientation [Unknown]
  - Pyrexia [Unknown]
  - Thrombocytopenia [Unknown]
  - Blood pressure decreased [Recovering/Resolving]
  - Stomatitis [Unknown]
  - Vomiting [Unknown]
  - Nausea [Unknown]
  - Fatigue [Unknown]

NARRATIVE: CASE EVENT DATE: 20210414
